FAERS Safety Report 9179257 (Version 3)
Quarter: 2013Q2

REPORT INFORMATION
  Report Type: Spontaneous
  Country: JP (occurrence: JP)
  Receive Date: 20130321
  Receipt Date: 20130521
  Transmission Date: 20140414
  Serious: Yes (Other)
  Sender: FDA-Public Use
  Company Number: JP-GLAXOSMITHKLINE-B0875636A

PATIENT
  Age: 35 Year
  Sex: Female

DRUGS (4)
  1. SERETIDE [Suspect]
     Indication: ASTHMA
     Dosage: 250MCG PER DAY
     Route: 055
     Dates: start: 20130312, end: 20130312
  2. ONON [Concomitant]
     Indication: ASTHMA
     Route: 048
     Dates: start: 20130312, end: 20130312
  3. MUCODYNE [Concomitant]
     Indication: ASTHMA
     Dosage: 500MG PER DAY
     Route: 048
     Dates: start: 20130312, end: 20130312
  4. CLARITH [Concomitant]
     Indication: ASTHMA
     Dosage: 200MG PER DAY
     Route: 048
     Dates: start: 20130312, end: 20130312

REACTIONS (6)
  - Bronchiectasis [Recovered/Resolved]
  - Hypoaesthesia [Recovered/Resolved]
  - Sensory loss [Recovered/Resolved]
  - Gait disturbance [Recovered/Resolved]
  - Muscle spasms [Recovered/Resolved]
  - Chest discomfort [Recovered/Resolved]
